FAERS Safety Report 5343937-1 (Version None)
Quarter: 2007Q2

REPORT INFORMATION
  Report Type: 
  Country: None (occurrence: None)
  Receive Date: 20070531
  Receipt Date: 20070531
  Transmission Date: 20071010
  Serious: Yes (Other)
  Sender: FDA-Public Use
  Company Number: None

PATIENT
  Age: 56 Year
  Sex: Female

DRUGS (2)
  1. FOSPHENYTOIN [Suspect]
     Indication: CONVULSION
     Dosage: 1500 MG ONCE IV DRIP
     Route: 041
  2. FOSPHENYTOIN [Suspect]
     Indication: DRUG LEVEL DECREASED
     Dosage: 1500 MG ONCE IV DRIP
     Route: 041

REACTIONS (1)
  - HYPOTENSION [None]
